FAERS Safety Report 8559396 (Version 4)
Quarter: 2012Q4

REPORT INFORMATION
  Report Type: 
  Country: JP (occurrence: JP)
  Receive Date: 20120512
  Receipt Date: 20121008
  Transmission Date: 20130627
  Serious: Yes (Death, Hospitalization)
  Sender: FDA-Public Use
  Company Number: JP-ELI_LILLY_AND_COMPANY-JP201205000395

PATIENT
  Age: 74 Year
  Sex: Female

DRUGS (5)
  1. FORTEO [Suspect]
     Indication: OSTEOPOROSIS
     Dosage: 20 ug, each morning
     Route: 058
     Dates: start: 20120322, end: 20120430
  2. FORTEO [Suspect]
     Dosage: UNK, each morning
     Route: 058
     Dates: start: 20120622
  3. GLAKAY [Concomitant]
     Dosage: 15 mg, tid
     Route: 048
     Dates: start: 20110305
  4. REBAMIPIDE [Concomitant]
     Dosage: 100 mg, tid
     Route: 048
     Dates: start: 20110329
  5. HYPEN [Concomitant]
     Dosage: 100 mg, tid
     Route: 048
     Dates: start: 20120309

REACTIONS (2)
  - Death [Fatal]
  - Cardiac failure [Recovering/Resolving]
